FAERS Safety Report 8506007-7 (Version None)
Quarter: 2012Q3

REPORT INFORMATION
  Report Type: 
  Country: None (occurrence: None)
  Receive Date: 20120712
  Receipt Date: 20120702
  Transmission Date: 20120928
  Serious: Yes (Congenital Anomaly)
  Sender: FDA-Public Use
  Company Number: DE-GLAXOSMITHKLINE-D0076187A

PATIENT
  Sex: Female

DRUGS (13)
  1. PARTUSISTEN [Concomitant]
     Indication: PREMATURE LABOUR
     Route: 064
  2. CEFUROXIME SODIUM [Concomitant]
     Indication: BACTERIAL INFECTION
     Route: 064
  3. CELESTAN [Concomitant]
     Indication: MATERNAL THERAPY TO ENHANCE FOETAL LUNG MATURITY
     Dosage: 12MG TWICE PER DAY
     Route: 064
  4. BUDESONIDE [Suspect]
     Indication: ASTHMA
     Route: 064
     Dates: start: 20110218, end: 20111110
  5. BUDENOFALK [Concomitant]
     Indication: CROHN'S DISEASE
     Dosage: 6MG PER DAY
     Route: 064
  6. ALBUTEROL SULATE [Suspect]
     Indication: ASTHMA
     Route: 064
     Dates: start: 20110218, end: 20111110
  7. VITAMIN B-12 [Concomitant]
     Indication: VOMITING IN PREGNANCY
     Dosage: 3MG PER DAY
     Route: 064
  8. MINERAL TAB [Concomitant]
     Indication: CROHN'S DISEASE
     Route: 064
  9. IODINE [Concomitant]
     Indication: PROPHYLAXIS OF NEURAL TUBE DEFECT
     Route: 064
     Dates: start: 20110321, end: 20111110
  10. PROGESTERONE [Concomitant]
     Indication: PROPHYLAXIS OF ABORTION
     Dosage: 150MG PER DAY
     Route: 064
     Dates: start: 20110321, end: 20110505
  11. VITAMIN WITH FOLATE [Concomitant]
     Indication: PROPHYLAXIS OF NEURAL TUBE DEFECT
     Route: 064
     Dates: start: 20110321, end: 20111110
  12. NIFICAL [Concomitant]
     Indication: PREMATURE LABOUR
     Dosage: 5MG TWELVE TIMES PER DAY
     Route: 064
  13. BUSCOPAN [Concomitant]
     Indication: ABDOMINAL PAIN UPPER
     Dosage: 10MG PER DAY
     Route: 064
     Dates: end: 20111110

REACTIONS (3)
  - PULMONARY ARTERY STENOSIS CONGENITAL [None]
  - FOETAL MACROSOMIA [None]
  - ATRIAL SEPTAL DEFECT [None]
